FAERS Safety Report 9286379 (Version 1)
Quarter: 2013Q2

REPORT INFORMATION
  Report Type: Spontaneous
  Country: US (occurrence: US)
  Receive Date: 20130513
  Receipt Date: 20130513
  Transmission Date: 20140414
  Serious: No
  Sender: FDA-Public Use
  Company Number: US-BAYER-2013-059346

PATIENT
  Age: 89 Year
  Sex: Female
  Weight: 59.86 kg

DRUGS (7)
  1. ALEVE CAPLET [Suspect]
     Indication: BACK PAIN
     Dosage: 2 DF, BID
     Route: 048
     Dates: start: 20130430
  2. GLYBURIDE [Concomitant]
  3. FOSAMAX [Concomitant]
  4. METFORMIN [Concomitant]
  5. PRILOSEC [Concomitant]
  6. FISH OIL [Concomitant]
  7. ZETIA [Concomitant]

REACTIONS (1)
  - Incorrect dose administered [None]
